FAERS Safety Report 11460061 (Version 2)
Quarter: 2015Q3

REPORT INFORMATION
  Report Type: Spontaneous
  Country: US (occurrence: US)
  Receive Date: 20150903
  Receipt Date: 20150903
  Transmission Date: 20151125
  Serious: No
  Sender: FDA-Public Use
  Company Number: US-ELI_LILLY_AND_COMPANY-US201211006440

PATIENT
  Age: 67 Year
  Sex: Male

DRUGS (6)
  1. CYMBALTA [Suspect]
     Active Substance: DULOXETINE HYDROCHLORIDE
     Indication: PAIN
     Dosage: 30 MG, QD
     Dates: end: 20121125
  2. LIVALO [Concomitant]
     Active Substance: PITAVASTATIN CALCIUM
  3. KLONOPIN [Concomitant]
     Active Substance: CLONAZEPAM
  4. FLEXERIL [Concomitant]
     Active Substance: CYCLOBENZAPRINE HYDROCHLORIDE
  5. TRAMADOL. [Concomitant]
     Active Substance: TRAMADOL
     Indication: PAIN
  6. BENICAR [Concomitant]
     Active Substance: OLMESARTAN MEDOXOMIL

REACTIONS (6)
  - Rash [Unknown]
  - Muscle spasms [Unknown]
  - Insomnia [Unknown]
  - Palpitations [Unknown]
  - Dizziness [Unknown]
  - Panic attack [Unknown]
